FAERS Safety Report 7829223-6 (Version None)
Quarter: 2011Q4

REPORT INFORMATION
  Report Type: 
  Country: None (occurrence: None)
  Receive Date: 20111020
  Receipt Date: 20111013
  Transmission Date: 20120403
  Serious: Yes (Other)
  Sender: FDA-Public Use
  Company Number: US-BAYER-2011-099718

PATIENT
  Age: 44 Year
  Sex: Female

DRUGS (2)
  1. ASPIRIN [Suspect]
     Indication: OPTIC ISCHAEMIC NEUROPATHY
     Dosage: 1-2DF, QD
     Route: 048
  2. ASPIRIN [Suspect]
     Indication: CAROTID ARTERY OCCLUSION

REACTIONS (2)
  - DIARRHOEA [None]
  - GASTROINTESTINAL ULCER [None]
